FAERS Safety Report 8619021-8 (Version None)
Quarter: 2012Q3

REPORT INFORMATION
  Report Type: 
  Country: None (occurrence: None)
  Receive Date: 20120824
  Receipt Date: 20120820
  Transmission Date: 20120928
  Serious: Yes (Death, Hospitalization, Other)
  Sender: FDA-Public Use
  Company Number: PHHY2012US072366

PATIENT
  Age: 11 Month
  Sex: Male

DRUGS (1)
  1. LOTREL [Suspect]
     Dosage: 9 DF,(10 TO 45MG OF AMLO AND 40 TO 180MG OF BENAZ)

REACTIONS (14)
  - VOMITING [None]
  - CYANOSIS [None]
  - BLOOD PRESSURE DECREASED [None]
  - TACHYCARDIA [None]
  - CONDITION AGGRAVATED [None]
  - DRUG ADMINISTERED TO PATIENT OF INAPPROPRIATE AGE [None]
  - CIRCULATORY COLLAPSE [None]
  - UNRESPONSIVE TO STIMULI [None]
  - RESPIRATORY RATE INCREASED [None]
  - OVERDOSE [None]
  - ASPHYXIA [None]
  - LETHARGY [None]
  - CARDIAC ARREST [None]
  - BRADYCARDIA [None]
